FAERS Safety Report 14871757 (Version 1)
Quarter: 2018Q2

REPORT INFORMATION
  Report Type: Spontaneous
  Country: US (occurrence: US)
  Receive Date: 20180509
  Receipt Date: 20180509
  Transmission Date: 20180711
  Serious: Yes (Other)
  Sender: FDA-Public Use
  Company Number: US-JNJFOC-20180510038

PATIENT
  Sex: Male

DRUGS (10)
  1. BAYER ASPIRIN [Concomitant]
     Active Substance: ASPIRIN
  2. SYMBICORT [Concomitant]
     Active Substance: BUDESONIDE\FORMOTEROL FUMARATE DIHYDRATE
  3. IMBRUVICA [Suspect]
     Active Substance: IBRUTINIB
     Indication: CHRONIC LYMPHOCYTIC LEUKAEMIA
     Route: 048
     Dates: start: 20170714, end: 201802
  4. CLOPIDOGREL [Concomitant]
     Active Substance: CLOPIDOGREL BISULFATE
  5. DONEPEZIL. [Concomitant]
     Active Substance: DONEPEZIL
  6. TYLENOL EXTRA STRENGTH [Concomitant]
     Active Substance: ACETAMINOPHEN
  7. FUROSEMIDE. [Concomitant]
     Active Substance: FUROSEMIDE
  8. CARVEDILOL. [Concomitant]
     Active Substance: CARVEDILOL
  9. PRAVASTATIN. [Concomitant]
     Active Substance: PRAVASTATIN
  10. PROAIR HFA [Concomitant]
     Active Substance: ALBUTEROL SULFATE

REACTIONS (1)
  - Surgery [Unknown]
